FAERS Safety Report 13849872 (Version 1)
Quarter: 2017Q3

REPORT INFORMATION
  Report Type: Spontaneous
  Country: JP (occurrence: JP)
  Receive Date: 20170809
  Receipt Date: 20170809
  Transmission Date: 20171127
  Serious: Yes (Other)
  Sender: FDA-Public Use
  Company Number: PHJP2017JP008362

PATIENT
  Age: 54 Year
  Sex: Male

DRUGS (1)
  1. CARBAMAZEPINE. [Suspect]
     Active Substance: CARBAMAZEPINE
     Indication: BLEPHAROSPASM
     Route: 048

REACTIONS (11)
  - C-reactive protein increased [Unknown]
  - Drug reaction with eosinophilia and systemic symptoms [Recovering/Resolving]
  - Face oedema [Unknown]
  - Intervertebral discitis [Unknown]
  - Staphylococcal infection [Unknown]
  - Rash generalised [Unknown]
  - Back pain [Unknown]
  - Malaise [Unknown]
  - Pyrexia [Unknown]
  - Hepatic function abnormal [Unknown]
  - White blood cell count increased [Unknown]
